FAERS Safety Report 8185227-8 (Version None)
Quarter: 2012Q1

REPORT INFORMATION
  Report Type: 
  Country: None (occurrence: None)
  Receive Date: 20120305
  Receipt Date: 20120223
  Transmission Date: 20120608
  Serious: Yes (Hospitalization, Other)
  Sender: FDA-Public Use
  Company Number: PHHY2011JP62642

PATIENT
  Sex: Male
  Weight: 59 kg

DRUGS (64)
  1. CLOZARIL [Suspect]
     Indication: SCHIZOPHRENIA, PARANOID TYPE
     Dosage: 25 MG, UNK
     Route: 048
     Dates: start: 20110202, end: 20110204
  2. CLOZARIL [Suspect]
     Dosage: 400 MG, UNK
     Route: 048
     Dates: start: 20110520, end: 20110525
  3. CLOZARIL [Suspect]
     Dosage: 475 MG, UNK
     Route: 048
     Dates: start: 20110606, end: 20110609
  4. CLOZARIL [Suspect]
     Dates: start: 20110614, end: 20110617
  5. CLOZARIL [Suspect]
     Dates: start: 20110618, end: 20110621
  6. TEGRETOL [Concomitant]
     Indication: SCHIZOPHRENIA, PARANOID TYPE
     Dosage: 200 MG, UNK
     Route: 048
     Dates: start: 20110613
  7. LANSOPRAZOLE [Concomitant]
     Dosage: 15 MG, UNK
     Route: 048
     Dates: end: 20110610
  8. CLOZARIL [Suspect]
     Dosage: 200 MG, UNK
     Route: 048
     Dates: start: 20110407, end: 20110410
  9. CLOZARIL [Suspect]
     Dosage: 250 MG, UNK
     Route: 048
     Dates: start: 20110415, end: 20110418
  10. CLOZARIL [Suspect]
     Dosage: 500 MG, UNK
     Route: 048
     Dates: start: 20110610, end: 20110613
  11. FLUNITRAZEPAM [Concomitant]
     Indication: SCHIZOPHRENIA, PARANOID TYPE
     Dosage: 1 MG, UNK
  12. FLUNITRAZEPAM [Concomitant]
     Dosage: 4 MG, UNK
  13. CLOZARIL [Suspect]
     Route: 048
     Dates: start: 20110630, end: 20110705
  14. LORAZEPAM [Concomitant]
     Indication: SCHIZOPHRENIA, PARANOID TYPE
     Dosage: 0.5 MG, UNK
     Dates: end: 20110708
  15. FLOMOX [Concomitant]
     Dosage: 300 MG, UNK
     Route: 048
     Dates: start: 20110614
  16. CLOZARIL [Suspect]
     Dosage: 25 MG, UNK
     Route: 048
     Dates: start: 20110223, end: 20110223
  17. CLOZARIL [Suspect]
     Dosage: 100 MG, UNK
     Route: 048
     Dates: start: 20110302, end: 20110308
  18. CLOZARIL [Suspect]
     Dosage: 175 MG, UNK
     Route: 048
     Dates: start: 20110330, end: 20110406
  19. CLOZARIL [Suspect]
     Dosage: 450 MG, UNK
     Route: 048
     Dates: start: 20110602, end: 20110605
  20. RONFLEMAN [Concomitant]
     Indication: SCHIZOPHRENIA, PARANOID TYPE
     Dosage: 0.25 MG, UNK
     Dates: end: 20110510
  21. LOXOPROFEN [Concomitant]
     Dosage: 60 MG, UNK
     Route: 048
     Dates: start: 20110218, end: 20110224
  22. DORAL [Concomitant]
     Indication: SCHIZOPHRENIA, PARANOID TYPE
     Dosage: 15 MG, UNK
     Route: 048
     Dates: start: 20110524
  23. DORAL [Concomitant]
     Dosage: 15 MG, UNK
     Route: 048
  24. VENA [Concomitant]
     Dosage: 150 MG, UNK
     Route: 048
     Dates: start: 20110613, end: 20110729
  25. CLOZARIL [Suspect]
     Dosage: 100 MG, UNK
     Route: 048
     Dates: start: 20110331, end: 20110331
  26. CLOZARIL [Suspect]
     Dosage: 225 MG, UNK
     Route: 048
     Dates: start: 20110411, end: 20110414
  27. DORAL [Concomitant]
     Dosage: 15 MG, UNK
     Route: 048
     Dates: end: 20110502
  28. LEUCON [Concomitant]
     Dosage: 60 MG, UNK
     Dates: start: 20110604
  29. CLOZARIL [Suspect]
     Dosage: 125 MG, UNK
     Route: 048
     Dates: start: 20110309, end: 20110322
  30. CLOZARIL [Suspect]
     Dosage: 275 MG, UNK
     Route: 048
     Dates: start: 20110419, end: 20110422
  31. CLOZARIL [Suspect]
     Dosage: 300 MG, UNK
     Route: 048
     Dates: start: 20110423, end: 20110426
  32. CLOZARIL [Suspect]
     Dosage: 325 MG, UNK
     Route: 048
     Dates: start: 20110427, end: 20110502
  33. FLUNITRAZEPAM [Concomitant]
     Dosage: 4 MG, UNK
  34. FEROTYM [Concomitant]
     Dosage: 150 MG, UNK
     Route: 048
  35. CLONAZEPAM [Concomitant]
     Indication: SCHIZOPHRENIA, PARANOID TYPE
     Dosage: 1.5 MG, UNK
     Dates: end: 20110211
  36. LORAZEPAM [Concomitant]
     Dosage: 0.5 MG, UNK
  37. ZITHROMAX [Concomitant]
     Dosage: 2000 MG, UNK
     Route: 048
     Dates: start: 20110228, end: 20110228
  38. BIASAN [Concomitant]
     Dosage: UNK
     Route: 048
     Dates: end: 20110502
  39. CELESTAMINE TAB [Concomitant]
     Route: 048
     Dates: start: 20110507
  40. GLYCYRON [Concomitant]
     Dosage: 4 DF, UNK
     Dates: start: 20110714
  41. CLOZARIL [Suspect]
     Dosage: 50 MG, UNK
     Route: 048
     Dates: start: 20110224, end: 20110226
  42. CLOZARIL [Suspect]
     Dosage: 150 MG, UNK
     Route: 048
     Dates: start: 20110323, end: 20110329
  43. CLOZARIL [Suspect]
     Dosage: 425 MG, UNK
     Route: 048
     Dates: start: 20110526, end: 20110601
  44. CLOZARIL [Suspect]
     Route: 048
     Dates: start: 20110622, end: 20110625
  45. CLOZARIL [Suspect]
     Route: 048
     Dates: start: 20110626, end: 20110629
  46. LITHIUM CARBONATE [Concomitant]
     Indication: SCHIZOPHRENIA, PARANOID TYPE
     Route: 048
     Dates: start: 20110218, end: 20110520
  47. LORAZEPAM [Concomitant]
     Dosage: 0.5 MG, UNK
  48. BIASAN [Concomitant]
     Dosage: 1100 MG, UNK
     Route: 048
     Dates: start: 20110328
  49. BIASAN [Concomitant]
     Dosage: 1100 MG, UNK
     Route: 048
  50. LEUCON [Concomitant]
     Dosage: 60 MG, UNK
  51. FLOMOX [Concomitant]
     Dosage: 300 MG, UNK
     Route: 048
     Dates: end: 20110620
  52. CLOZARIL [Suspect]
     Indication: SCHIZOPHRENIA
     Dosage: 12.5 MG, UNK
     Route: 048
     Dates: start: 20110201, end: 20110201
  53. CLOZARIL [Suspect]
     Dosage: 50 MG, UNK
     Route: 048
     Dates: start: 20110205, end: 20110208
  54. CLOZARIL [Suspect]
     Dosage: 75 MG, UNK
     Route: 048
     Dates: start: 20110209, end: 20110215
  55. CLOZARIL [Suspect]
     Dosage: 12.5 MG, UNK
     Route: 048
     Dates: start: 20110216, end: 20110216
  56. CLOZARIL [Suspect]
     Dosage: 75 MG, UNK
     Route: 048
     Dates: start: 20110227, end: 20110301
  57. CLOZARIL [Suspect]
     Dosage: 350 MG, UNK
     Route: 048
     Dates: start: 20110503, end: 20110518
  58. CLOZARIL [Suspect]
     Dosage: 375 MG, UNK
     Route: 048
     Dates: start: 20110519, end: 20110519
  59. MUCOSTA [Concomitant]
     Dosage: 300 MG, UNK
     Route: 048
  60. MUCOSTA [Concomitant]
     Dosage: 300 MG, UNK
     Route: 048
  61. FEROTYM [Concomitant]
     Dosage: 150 MG, UNK
     Route: 048
     Dates: start: 20110430
  62. LORAZEPAM [Concomitant]
     Dosage: 0.5 MG, UNK
     Dates: end: 20110708
  63. ACETAMINOPHEN [Concomitant]
     Dosage: 200 MG, UNK
     Route: 048
     Dates: start: 20110217, end: 20110223
  64. MARZULENE S [Concomitant]
     Dosage: 3 G, UNK
     Route: 048

REACTIONS (6)
  - ASPARTATE AMINOTRANSFERASE INCREASED [None]
  - PARKINSONISM [None]
  - HEPATIC FUNCTION ABNORMAL [None]
  - ALANINE AMINOTRANSFERASE INCREASED [None]
  - ENTEROCOLITIS [None]
  - RECTAL PROLAPSE [None]
